FAERS Safety Report 8294765-9 (Version None)
Quarter: 2012Q2

REPORT INFORMATION
  Report Type: 
  Country: None (occurrence: None)
  Receive Date: 20120418
  Receipt Date: 20110603
  Transmission Date: 20120825
  Serious: No
  Sender: FDA-Public Use
  Company Number: US-MYLANLABS-2011S1008847

PATIENT
  Age: 80 Year
  Sex: Female

DRUGS (13)
  1. VERAPAMIL HYDROCHLORIDE [Suspect]
     Route: 048
     Dates: start: 20110420
  2. VERAPAMIL HYDROCHLORIDE [Suspect]
     Dosage: QAM + HS
     Route: 048
     Dates: start: 20110326, end: 20110420
  3. VITAMIN D [Concomitant]
  4. BENICAR [Concomitant]
     Dates: start: 20100222, end: 20100922
  5. BENICAR [Concomitant]
     Dates: start: 20100922
  6. ADDLIFE COQ10 [Concomitant]
     Route: 048
  7. COQ10 /00517201/ [Concomitant]
  8. VERAPAMIL HYDROCHLORIDE [Suspect]
     Indication: BLOOD PRESSURE INCREASED
     Route: 048
     Dates: start: 20110210
  9. BENICAR [Concomitant]
     Dates: start: 20090409, end: 20100222
  10. ASCORBIC ACID [Concomitant]
  11. CALMAX /00060701/ [Concomitant]
  12. VITAMIN D [Concomitant]
     Route: 060
  13. BIOTIN [Concomitant]

REACTIONS (4)
  - VISION BLURRED [None]
  - OEDEMA PERIPHERAL [None]
  - VARICOSE VEIN [None]
  - CHEST PAIN [None]
